FAERS Safety Report 10213150 (Version 1)
Quarter: 2014Q2

REPORT INFORMATION
  Report Type: Report from Study
  Country: CA (occurrence: CA)
  Receive Date: 20140603
  Receipt Date: 20140603
  Transmission Date: 20141212
  Serious: Yes (Other)
  Sender: FDA-Public Use
  Company Number: CA-PFIZER INC-2014144066

PATIENT
  Age: 47 Year
  Sex: Female
  Weight: 90 kg

DRUGS (16)
  1. IRINOTECAN HCL [Suspect]
     Indication: NEOPLASM MALIGNANT
     Dosage: UNK
     Route: 042
  2. AVASTIN [Suspect]
     Indication: NEOPLASM MALIGNANT
     Dosage: 900.0 MG, 1X/2 WEEKS
     Route: 042
  3. AVASTIN [Suspect]
     Dosage: 990.0 MG, 1X/2 WEEKS
     Route: 042
  4. ACETAMINOPHEN [Concomitant]
     Dosage: 650.0 MG, UNK
     Route: 048
  5. BENADRYL [Concomitant]
     Dosage: 50.0 MG, UNK
     Route: 048
  6. DEXAMETHASONE [Concomitant]
     Dosage: 1.0 MG, 2X/DAY
  7. DEXAMETHASONE [Concomitant]
     Dosage: 0.5 MG, 1X/DAY
  8. FENTANYL CITRATE [Concomitant]
     Dosage: UNK
  9. KEPPRA [Concomitant]
     Dosage: UNK
  10. LYRICA [Concomitant]
     Dosage: UNK
  11. METHYLPREDNISOLONE SODIUM SUCCINATE [Concomitant]
     Dosage: 100.0 MG, UNK
     Route: 042
  12. NAPROXEN [Concomitant]
     Dosage: UNK
  13. NORMAL SALINE [Concomitant]
     Dosage: UNK
  14. OXYBUTYNIN HYDROCHLORIDE [Concomitant]
     Dosage: UNK
  15. PANTOPRAZOLE SODIUM [Concomitant]
     Dosage: UNK
  16. VENLAFAXINE HYDROCHLORIDE [Concomitant]
     Dosage: UNK

REACTIONS (17)
  - Diarrhoea [Not Recovered/Not Resolved]
  - Vomiting [Not Recovered/Not Resolved]
  - Weight decreased [Not Recovered/Not Resolved]
  - Nervous system disorder [Not Recovered/Not Resolved]
  - Disorientation [Recovered/Resolved]
  - Dysarthria [Not Recovered/Not Resolved]
  - Acne [Not Recovered/Not Resolved]
  - Pain [Not Recovered/Not Resolved]
  - Skin irritation [Not Recovered/Not Resolved]
  - Urinary incontinence [Not Recovered/Not Resolved]
  - Blood pressure decreased [Recovered/Resolved]
  - Fall [Not Recovered/Not Resolved]
  - Dyspnoea exertional [Not Recovered/Not Resolved]
  - Condition aggravated [Not Recovered/Not Resolved]
  - General physical health deterioration [Not Recovered/Not Resolved]
  - Disease progression [Not Recovered/Not Resolved]
  - Neoplasm malignant [Not Recovered/Not Resolved]
